FAERS Safety Report 14668413 (Version 1)
Quarter: 2018Q1

REPORT INFORMATION
  Report Type: Spontaneous
  Country: CA (occurrence: CA)
  Receive Date: 20180322
  Receipt Date: 20180322
  Transmission Date: 20180509
  Serious: Yes (Other)
  Sender: FDA-Public Use
  Company Number: CA-BAYER-2018-051596

PATIENT
  Age: 36 Year
  Weight: 92.97 kg

DRUGS (2)
  1. MIRENA [Suspect]
     Active Substance: LEVONORGESTREL
     Indication: CONTRACEPTION
     Dosage: 20 MCG/24HR, CONT
     Route: 015
  2. MIRENA [Suspect]
     Active Substance: LEVONORGESTREL

REACTIONS (6)
  - Cholecystectomy [Unknown]
  - Emergency care examination [Unknown]
  - Impaired work ability [Unknown]
  - Colonoscopy [Unknown]
  - Intra-uterine contraceptive device removal [Unknown]
  - Nausea [Unknown]
